FAERS Safety Report 20447540 (Version 2)
Quarter: 2022Q1

REPORT INFORMATION
  Report Type: Report from Study
  Country: FR (occurrence: FR)
  Receive Date: 20220209
  Receipt Date: 20220314
  Transmission Date: 20220423
  Serious: Yes (Death, Disabling)
  Sender: FDA-Public Use
  Company Number: FR-SERVIER-S22001189

PATIENT

DRUGS (7)
  1. PEGASPARGASE [Suspect]
     Active Substance: PEGASPARGASE
     Indication: Acute lymphocytic leukaemia
     Dosage: 4975 IU, ON D12
     Route: 042
     Dates: start: 20220117, end: 20220117
  2. VINCRISTINE SULFATE [Suspect]
     Active Substance: VINCRISTINE SULFATE
     Indication: Acute lymphocytic leukaemia
     Dosage: 2 MG, D8, D15, D22
     Route: 042
     Dates: start: 20220112, end: 20220202
  3. DAUNORUBICIN HYDROCHLORIDE [Suspect]
     Active Substance: DAUNORUBICIN HYDROCHLORIDE
     Indication: Acute lymphocytic leukaemia
     Dosage: 60 MG, D8,  D15, D22
     Route: 042
     Dates: start: 20220112, end: 20220202
  4. PREDNISOLONE [Suspect]
     Active Substance: PREDNISOLONE
     Indication: Acute lymphocytic leukaemia
     Dosage: 120 MG
     Route: 042
     Dates: start: 20220114, end: 20220130
  5. TN UNSPECIFIED [Concomitant]
     Indication: Acute lymphocytic leukaemia
     Dosage: 30 MG, D13
     Route: 037
     Dates: start: 20220120, end: 20220202
  6. TN UNSPECIFIED [Concomitant]
     Indication: Acute lymphocytic leukaemia
     Dosage: 15 MG, D13
     Route: 037
     Dates: start: 20220120, end: 20220202
  7. TN UNSPECIFIED [Concomitant]
     Indication: Acute lymphocytic leukaemia
     Dosage: 15 MG, D13
     Route: 065
     Dates: start: 20220120, end: 20220202

REACTIONS (3)
  - Septic shock [Fatal]
  - Escherichia infection [Fatal]
  - Hyperbilirubinaemia [Not Recovered/Not Resolved]

NARRATIVE: CASE EVENT DATE: 20220130
